FAERS Safety Report 6342484-8 (Version None)
Quarter: 2009Q3

REPORT INFORMATION
  Report Type: 
  Country: None (occurrence: None)
  Receive Date: 20090908
  Receipt Date: 20061120
  Transmission Date: 20100115
  Serious: No
  Sender: FDA-Public Use
  Company Number: JP-ROCHE-395171

PATIENT
  Sex: Female
  Weight: 3.2 kg

DRUGS (1)
  1. OSELTAMIVIR [Suspect]
     Indication: INFLUENZA
     Dosage: DISCONTINUED TREATMENT AFTER ONE CAPSULE .
     Dates: start: 20050121, end: 20050121

REACTIONS (2)
  - MATERNAL DRUGS AFFECTING FOETUS [None]
  - NORMAL NEWBORN [None]
